FAERS Safety Report 9746752 (Version 1)
Quarter: 2013Q4

REPORT INFORMATION
  Report Type: Report from Study
  Country: US (occurrence: US)
  Receive Date: 20131211
  Receipt Date: 20131211
  Transmission Date: 20140711
  Serious: Yes (Hospitalization)
  Sender: FDA-Public Use
  Company Number: US-ABBVIE-13P-163-1175954-00

PATIENT
  Age: 34 Year
  Sex: Female
  Weight: 54.48 kg

DRUGS (3)
  1. HUMIRA [Suspect]
     Indication: CROHN^S DISEASE
     Dates: start: 201307, end: 201309
  2. IMURAN [Concomitant]
     Indication: CROHN^S DISEASE
  3. EFFEXOR [Concomitant]
     Indication: DEPRESSION

REACTIONS (3)
  - Intestinal stenosis [Recovered/Resolved]
  - Abdominal pain [Recovered/Resolved]
  - Vomiting [Recovered/Resolved]
